FAERS Safety Report 20166387 (Version 2)
Quarter: 2022Q1

REPORT INFORMATION
  Report Type: Spontaneous
  Country: US (occurrence: US)
  Receive Date: 20211209
  Receipt Date: 20220113
  Transmission Date: 20220423
  Serious: Yes (Other)
  Sender: FDA-Public Use
  Company Number: US-GSKCCFUS-Case-01236687_AE-72506

PATIENT
  Sex: Female

DRUGS (2)
  1. ZEJULA [Suspect]
     Active Substance: NIRAPARIB
     Indication: Product used for unknown indication
     Dosage: 100 MG
  2. ZEJULA [Suspect]
     Active Substance: NIRAPARIB
     Dosage: 100 MG

REACTIONS (7)
  - Throat cancer [Unknown]
  - Pharyngeal haemorrhage [Unknown]
  - Gastric fistula [Unknown]
  - Dysphagia [Unknown]
  - Epistaxis [Unknown]
  - Drug ineffective [Unknown]
  - Product complaint [Unknown]
